FAERS Safety Report 15186597 (Version 1)
Quarter: 2018Q3

REPORT INFORMATION
  Report Type: Report from Study
  Country: US (occurrence: US)
  Receive Date: 20180723
  Receipt Date: 20180723
  Transmission Date: 20181010
  Serious: No
  Sender: FDA-Public Use
  Company Number: US-EXELIXIS-CABO-18013498

PATIENT
  Sex: Female

DRUGS (1)
  1. CABOMETYX [Suspect]
     Active Substance: CABOZANTINIB S-MALATE
     Indication: ENDOMETRIAL CANCER
     Dosage: 40 MG, QD
     Route: 048

REACTIONS (7)
  - Hot flush [Unknown]
  - Nasal discomfort [Unknown]
  - Off label use [Unknown]
  - Paraesthesia [Unknown]
  - Dry mouth [Unknown]
  - Constipation [Unknown]
  - Appetite disorder [Unknown]
